FAERS Safety Report 5330627-4 (Version None)
Quarter: 2007Q2

REPORT INFORMATION
  Report Type: 
  Country: None (occurrence: None)
  Receive Date: 20070516
  Receipt Date: 20070504
  Transmission Date: 20071010
  Serious: Yes (Hospitalization)
  Sender: FDA-Public Use
  Company Number: 2007-01340

PATIENT
  Age: 60 Year
  Sex: 0

DRUGS (3)
  1. VELCADE [Suspect]
     Indication: MULTIPLE MYELOMA
  2. THALIDOMIDE [Suspect]
     Indication: MULTIPLE MYELOMA
  3. PREDNISONE TAB [Concomitant]

REACTIONS (4)
  - LUNG INFECTION PSEUDOMONAL [None]
  - NEUROPATHY [None]
  - OBLITERATIVE BRONCHIOLITIS [None]
  - PULMONARY EMBOLISM [None]
